FAERS Safety Report 9615266 (Version 1)
Quarter: 2013Q4

REPORT INFORMATION
  Report Type: Spontaneous
  Country: US (occurrence: US)
  Receive Date: 20131011
  Receipt Date: 20131011
  Transmission Date: 20140711
  Serious: No
  Sender: FDA-Public Use
  Company Number: US-PURDUE-USA-2013-0097462

PATIENT
  Age: 28 Year
  Sex: Female

DRUGS (1)
  1. BUTRANS [Suspect]
     Indication: LYME DISEASE
     Dosage: 10 MCG, UNK
     Route: 062
     Dates: start: 20130105

REACTIONS (3)
  - Feeling abnormal [Unknown]
  - Hypoaesthesia [Unknown]
  - Pruritus [Unknown]
